FAERS Safety Report 5774013-1 (Version None)
Quarter: 2008Q2

REPORT INFORMATION
  Report Type: 
  Country: None (occurrence: None)
  Receive Date: 20080616
  Receipt Date: 20080605
  Transmission Date: 20081010
  Serious: Yes (Hospitalization)
  Sender: FDA-Public Use
  Company Number: DE-ROCHE-567175

PATIENT
  Sex: Female
  Weight: 56 kg

DRUGS (2)
  1. PEGASYS [Suspect]
     Indication: HEPATITIS C
     Route: 058
     Dates: start: 20080411, end: 20080511
  2. COPEGUS [Suspect]
     Indication: HEPATITIS C
     Route: 048
     Dates: start: 20080411, end: 20080511

REACTIONS (2)
  - BIPOLAR I DISORDER [None]
  - SCHIZOPHRENIFORM DISORDER [None]
